FAERS Safety Report 5286808-1 (Version None)
Quarter: 2007Q2

REPORT INFORMATION
  Report Type: 
  Country: None (occurrence: None)
  Receive Date: 20070404
  Receipt Date: 20070320
  Transmission Date: 20071010
  Serious: Yes (Hospitalization, Other)
  Sender: FDA-Public Use
  Company Number: DE-SHR-DE-2007-007996

PATIENT
  Sex: Female

DRUGS (4)
  1. BETASERON [Suspect]
     Indication: MULTIPLE SCLEROSIS
     Dates: start: 20051110, end: 20070201
  2. HERCEPTIN [Suspect]
     Indication: BREAST CANCER FEMALE
     Dosage: 300 MG, UNK
     Dates: start: 20061201, end: 20070208
  3. TAMOXIFEN CITRATE [Concomitant]
     Indication: BREAST CANCER FEMALE
     Dates: start: 20061001, end: 20061101
  4. TAMOXIFEN CITRATE [Concomitant]
     Dosage: UNK, UNK

REACTIONS (3)
  - CARDIOMEGALY [None]
  - CYTOTOXIC CARDIOMYOPATHY [None]
  - LEFT VENTRICULAR FAILURE [None]
